FAERS Safety Report 9363772 (Version 1)
Quarter: 2013Q2

REPORT INFORMATION
  Report Type: Spontaneous
  Country: TR (occurrence: TR)
  Receive Date: 20130624
  Receipt Date: 20130624
  Transmission Date: 20140414
  Serious: Yes (Hospitalization)
  Sender: FDA-Public Use
  Company Number: TR-JNJFOC-20130607902

PATIENT
  Age: 17 Year
  Sex: Male
  Weight: 63 kg

DRUGS (7)
  1. CONCERTA [Suspect]
     Indication: ATTENTION DEFICIT/HYPERACTIVITY DISORDER
     Route: 048
  2. CONCERTA [Suspect]
     Indication: ATTENTION DEFICIT/HYPERACTIVITY DISORDER
     Route: 048
  3. CONCERTA [Suspect]
     Indication: ATTENTION DEFICIT/HYPERACTIVITY DISORDER
     Route: 048
  4. RISPERIDONE [Suspect]
     Indication: AGGRESSION
     Route: 048
  5. RISPERIDONE [Suspect]
     Indication: AGGRESSION
     Route: 048
  6. RISPERIDONE [Suspect]
     Indication: AGGRESSION
     Route: 048
  7. ARIPIPRAZOLE [Suspect]
     Indication: AGGRESSION
     Route: 065

REACTIONS (1)
  - Psychotic disorder [Recovered/Resolved]
